FAERS Safety Report 11372748 (Version 1)
Quarter: 2015Q3

REPORT INFORMATION
  Report Type: Spontaneous
  Country: US (occurrence: US)
  Receive Date: 20150811
  Receipt Date: 20150811
  Transmission Date: 20151125
  Serious: No
  Sender: FDA-Public Use
  Company Number: US-ELI_LILLY_AND_COMPANY-US201301000262

PATIENT
  Age: 63 Year
  Sex: Male

DRUGS (3)
  1. AXIRON [Suspect]
     Active Substance: TESTOSTERONE
     Indication: BLOOD TESTOSTERONE DECREASED
     Dosage: 60 MG, QD
     Dates: start: 20121222
  2. ASPIRIN. [Concomitant]
     Active Substance: ASPIRIN
  3. MARIJUANA [Concomitant]
     Active Substance: CANNABIS SATIVA SUBSP. INDICA TOP

REACTIONS (6)
  - Abdominal discomfort [Unknown]
  - Nervousness [Unknown]
  - Asthenia [Unknown]
  - Prostatomegaly [Unknown]
  - Urine output increased [Unknown]
  - Chest discomfort [Unknown]

NARRATIVE: CASE EVENT DATE: 20121222
